FAERS Safety Report 11095035 (Version 1)
Quarter: 2015Q2

REPORT INFORMATION
  Report Type: Spontaneous
  Country: US (occurrence: US)
  Receive Date: 20150506
  Receipt Date: 20150506
  Transmission Date: 20150821
  Serious: No
  Sender: FDA-Public Use
  Company Number: US-SA-2013SA105392

PATIENT
  Age: 55 Year
  Sex: Female

DRUGS (2)
  1. APIDRA [Suspect]
     Active Substance: INSULIN GLULISINE
     Indication: TYPE 1 DIABETES MELLITUS
     Dosage: FORM: PUMP?DOSE:PUMP
     Route: 058
     Dates: start: 20150228
  2. APIDRA [Suspect]
     Active Substance: INSULIN GLULISINE
     Indication: TYPE 1 DIABETES MELLITUS
     Route: 058

REACTIONS (3)
  - Malaise [Unknown]
  - Drug ineffective [Unknown]
  - Hyperglycaemia [Recovering/Resolving]
